FAERS Safety Report 7458768-6 (Version None)
Quarter: 2011Q2

REPORT INFORMATION
  Report Type: 
  Country: None (occurrence: None)
  Receive Date: 20110504
  Receipt Date: 20110503
  Transmission Date: 20111010
  Serious: Yes (Hospitalization, Other)
  Sender: FDA-Public Use
  Company Number: CH-PFIZER INC-2011080206

PATIENT
  Age: 74 Year
  Sex: Female

DRUGS (9)
  1. EFFEXOR XR [Suspect]
     Dosage: 75 MG, 2X/DAY
     Route: 048
     Dates: start: 20070215
  2. XANAX [Concomitant]
     Route: 048
  3. EFFEXOR XR [Suspect]
     Dosage: 75 MG, 2X/DAY
     Route: 048
     Dates: start: 20110324
  4. ELTROXIN [Concomitant]
     Route: 048
  5. EFFEXOR XR [Suspect]
     Dosage: 187.5 MG, 1X/DAY
     Route: 048
     Dates: start: 20080201
  6. EFFEXOR XR [Suspect]
     Indication: DEPRESSION
     Dosage: 150 MG, 1X/DAY
     Route: 048
     Dates: start: 20090801
  7. EFFEXOR XR [Suspect]
     Dosage: 75 MG, 1X/DAY
     Route: 048
     Dates: start: 20110310, end: 20110323
  8. PANTOZOL [Concomitant]
     Route: 048
  9. OXYNORM [Concomitant]
     Route: 048

REACTIONS (3)
  - BLOOD CHOLESTEROL INCREASED [None]
  - LOW DENSITY LIPOPROTEIN INCREASED [None]
  - UROSEPSIS [None]
